FAERS Safety Report 6483622-6 (Version None)
Quarter: 2009Q4

REPORT INFORMATION
  Report Type: 
  Country: None (occurrence: None)
  Receive Date: 20091209
  Receipt Date: 20091130
  Transmission Date: 20100525
  Serious: Yes (Other)
  Sender: FDA-Public Use
  Company Number: PHHY2009ES52609

PATIENT
  Age: 50 Year
  Sex: Male

DRUGS (1)
  1. ACLASTA [Suspect]

REACTIONS (1)
  - BLOOD GLUCOSE INCREASED [None]
